FAERS Safety Report 9757992 (Version 4)
Quarter: 2014Q1

REPORT INFORMATION
  Report Type: Report from Study
  Country: MX (occurrence: MX)
  Receive Date: 20131216
  Receipt Date: 20140218
  Transmission Date: 20141002
  Serious: Yes (Other)
  Sender: FDA-Public Use
  Company Number: MX-ROCHE-1319839

PATIENT
  Age: 62 Year
  Sex: Female
  Weight: 74 kg

DRUGS (11)
  1. RANIBIZUMAB [Suspect]
     Indication: RETINAL HAEMORRHAGE
     Dosage: 0.5 MG/0.5 ML?RECENT DOSE ON UNK/MAY/2013
     Route: 050
     Dates: start: 201112
  2. RANIBIZUMAB [Suspect]
     Indication: DIABETIC RETINOPATHY
     Dosage: 0.5MG/0.05 ML
     Route: 050
     Dates: start: 201305
  3. RANIBIZUMAB [Suspect]
     Indication: DIABETIC NEUROPATHY
  4. MINIPRESS [Concomitant]
     Route: 065
     Dates: start: 201305
  5. MINIPRESS [Concomitant]
     Route: 065
     Dates: start: 201311
  6. FUROSEMIDE [Concomitant]
     Route: 065
     Dates: start: 201112
  7. FUROSEMIDE [Concomitant]
     Route: 065
     Dates: start: 201212
  8. ENALAPRIL [Concomitant]
  9. HYDROCHLOROTHIAZIDE [Concomitant]
  10. DIGOXIN [Concomitant]
     Route: 065
     Dates: start: 201212
  11. DIGOXIN [Concomitant]
     Route: 065
     Dates: start: 20140206

REACTIONS (18)
  - Blindness [Not Recovered/Not Resolved]
  - Crying [Unknown]
  - Hepatic pain [Not Recovered/Not Resolved]
  - Abdominal pain [Not Recovered/Not Resolved]
  - Blood glucose increased [Not Recovered/Not Resolved]
  - Blood cholesterol increased [Recovering/Resolving]
  - Blood triglycerides increased [Recovering/Resolving]
  - Nausea [Not Recovered/Not Resolved]
  - Feeling abnormal [Unknown]
  - Local swelling [Recovering/Resolving]
  - Sinusitis [Not Recovered/Not Resolved]
  - Swelling [Recovering/Resolving]
  - Abdominal rigidity [Not Recovered/Not Resolved]
  - Cold sweat [Unknown]
  - Hypoglycaemia [Recovered/Resolved]
  - Fluid retention [Unknown]
  - Vision blurred [Not Recovered/Not Resolved]
  - Eye haemorrhage [Unknown]
